FAERS Safety Report 17402039 (Version 2)
Quarter: 2020Q1

REPORT INFORMATION
  Report Type: Report from Study
  Country: FR (occurrence: FR)
  Receive Date: 20200211
  Receipt Date: 20200214
  Transmission Date: 20200409
  Serious: Yes (Hospitalization)
  Sender: FDA-Public Use
  Company Number: FR-ROCHE-2513229

PATIENT
  Age: 78 Year
  Sex: Male

DRUGS (11)
  1. VINORELBINE [Suspect]
     Active Substance: VINORELBINE TARTRATE
     Indication: NON-SMALL CELL LUNG CANCER
     Dosage: CYCLE 09 DAY 03
     Route: 048
     Dates: start: 20190702, end: 20200111
  2. TAMSULOSINE [TAMSULOSIN] [Concomitant]
     Active Substance: TAMSULOSIN
  3. ATEZOLIZUMAB. [Suspect]
     Active Substance: ATEZOLIZUMAB
     Dosage: CYCLE 10 DAY01
     Route: 065
  4. PARACETAMOL [Concomitant]
     Active Substance: ACETAMINOPHEN
  5. TINZAPARINE SODIQUE [Concomitant]
     Active Substance: TINZAPARIN SODIUM
  6. PANTOPRAZOLE [Concomitant]
     Active Substance: PANTOPRAZOLE
  7. LERCANIDIPINE [Concomitant]
     Active Substance: LERCANIDIPINE
  8. TELMISARTAN. [Concomitant]
     Active Substance: TELMISARTAN
  9. ATEZOLIZUMAB. [Suspect]
     Active Substance: ATEZOLIZUMAB
     Indication: NON-SMALL CELL LUNG CANCER
     Dosage: CYCLE 09
     Route: 042
     Dates: start: 20190702, end: 20200203
  10. MACROGOL [Concomitant]
     Active Substance: POLYETHYLENE GLYCOLS
  11. MORPHINE SULFATE. [Concomitant]
     Active Substance: MORPHINE SULFATE

REACTIONS (1)
  - Cholangitis acute [Not Recovered/Not Resolved]

NARRATIVE: CASE EVENT DATE: 20191220
